FAERS Safety Report 6937769-8 (Version None)
Quarter: 2010Q3

REPORT INFORMATION
  Report Type: 
  Country: None (occurrence: None)
  Receive Date: 20100823
  Receipt Date: 20100816
  Transmission Date: 20110219
  Serious: Yes (Hospitalization)
  Sender: FDA-Public Use
  Company Number: JP-BRISTOL-MYERS SQUIBB COMPANY-15243736

PATIENT
  Sex: Female

DRUGS (4)
  1. BRIPLATIN [Suspect]
     Indication: ADENOCARCINOMA OF THE CERVIX
     Route: 041
  2. MITOMYCIN [Suspect]
     Indication: ADENOCARCINOMA OF THE CERVIX
     Dosage: INJECTION
  3. LASTET [Suspect]
     Indication: ADENOCARCINOMA OF THE CERVIX
  4. RADIOTHERAPY [Suspect]
     Indication: ADENOCARCINOMA OF THE CERVIX

REACTIONS (1)
  - ILEUS [None]
